FAERS Safety Report 21024978 (Version 3)
Quarter: 2022Q3

REPORT INFORMATION
  Report Type: Report from Study
  Country: CA (occurrence: CA)
  Receive Date: 20220629
  Receipt Date: 20220811
  Transmission Date: 20221027
  Serious: Yes (Hospitalization, Other)
  Sender: FDA-Public Use
  Company Number: CA-ABBVIE-22K-028-4449638-00

PATIENT
  Age: 44 Year
  Sex: Female

DRUGS (1)
  1. SKYRIZI [Suspect]
     Active Substance: RISANKIZUMAB-RZAA
     Indication: Psoriasis
     Route: 058
     Dates: start: 20191127, end: 20220413

REACTIONS (6)
  - Leukaemia [Not Recovered/Not Resolved]
  - Bicytopenia [Unknown]
  - Tremor [Unknown]
  - Platelet count decreased [Unknown]
  - Hyperplasia [Unknown]
  - Blood disorder [Unknown]

NARRATIVE: CASE EVENT DATE: 20220601
